FAERS Safety Report 14563668 (Version 2)
Quarter: 2018Q1

REPORT INFORMATION
  Report Type: Spontaneous
  Country: JP (occurrence: JP)
  Receive Date: 20180222
  Receipt Date: 20180228
  Transmission Date: 20180509
  Serious: Yes (Hospitalization, Other)
  Sender: FDA-Public Use
  Company Number: JP-BRISTOL-MYERS SQUIBB COMPANY-BMS-2018-016014

PATIENT
  Age: 64 Year
  Sex: Female

DRUGS (6)
  1. AMBROXOL HYDROCHLORIDE [Suspect]
     Active Substance: AMBROXOL HYDROCHLORIDE
     Indication: PNEUMONIA
     Dosage: UNK
     Route: 048
     Dates: start: 20170508
  2. CLARITHROMYCIN. [Suspect]
     Active Substance: CLARITHROMYCIN
     Indication: PNEUMONIA
     Dosage: UNK
     Route: 048
     Dates: start: 20170508, end: 201705
  3. AMBROXOL HYDROCHLORIDE [Suspect]
     Active Substance: AMBROXOL HYDROCHLORIDE
     Indication: PRODUCT USED FOR UNKNOWN INDICATION
     Dosage: 45 MG, UNK
     Route: 048
     Dates: end: 20180129
  4. GENINAX [Suspect]
     Active Substance: GARENOXACIN MESYLATE
     Indication: PNEUMONIA
     Dosage: 200 MG, UNK
     Route: 048
     Dates: start: 20180123, end: 20180129
  5. OPDIVO [Suspect]
     Active Substance: NIVOLUMAB
     Indication: NON-SMALL CELL LUNG CANCER
     Dosage: 3 MG/KG, UNK
     Route: 041
     Dates: start: 20161122, end: 20170404
  6. OPDIVO [Suspect]
     Active Substance: NIVOLUMAB
     Indication: PRODUCT USED FOR UNKNOWN INDICATION
     Dosage: 3 MG/KG, UNK
     Route: 041
     Dates: start: 20171204, end: 20180109

REACTIONS (4)
  - Organising pneumonia [Unknown]
  - Drug eruption [Recovering/Resolving]
  - Malignant neoplasm progression [Unknown]
  - Pneumonia [Unknown]

NARRATIVE: CASE EVENT DATE: 20170418
